FAERS Safety Report 5930777-5 (Version None)
Quarter: 2008Q4

REPORT INFORMATION
  Report Type: 
  Country: None (occurrence: None)
  Receive Date: 20081021
  Receipt Date: 20081016
  Transmission Date: 20090506
  Serious: Yes (Death)
  Sender: FDA-Public Use
  Company Number: 2008JP004995

PATIENT
  Age: 81 Year
  Sex: Female

DRUGS (7)
  1. PROGRAF [Suspect]
     Indication: RHEUMATOID ARTHRITIS
     Dosage: 2 MG, /D; 1 MG, /D, ORAL
     Dates: start: 20080610, end: 20080809
  2. PROGRAF [Suspect]
     Indication: RHEUMATOID ARTHRITIS
     Dosage: 2 MG, /D; 1 MG, /D, ORAL
     Dates: start: 20080810, end: 20080811
  3. RIMATIL (BUCILLAMINE) [Concomitant]
  4. PREDONINE (PREDNISOLONE) [Concomitant]
  5. GASPORT [Concomitant]
  6. MUCODYNE (CARBOCISTEINE) [Concomitant]
  7. CLINORIL [Concomitant]

REACTIONS (1)
  - INTERSTITIAL LUNG DISEASE [None]
